FAERS Safety Report 7241124-3 (Version None)
Quarter: 2011Q1

REPORT INFORMATION
  Report Type: 
  Country: None (occurrence: None)
  Receive Date: 20110124
  Receipt Date: 20110105
  Transmission Date: 20110831
  Serious: Yes (Hospitalization)
  Sender: FDA-Public Use
  Company Number: PHHO2009US08811

PATIENT
  Sex: Female
  Weight: 73.3 kg

DRUGS (10)
  1. LISINOPRIL [Concomitant]
  2. NEXIUM [Concomitant]
  3. STI571/CGP57148B [Suspect]
     Dosage: 400 MG, QD
  4. HYDROCHLOROTHIAZIDE [Concomitant]
  5. STI571/CGP57148B [Suspect]
     Indication: CHRONIC MYELOID LEUKAEMIA
     Dosage: 800 MG, QD
     Route: 048
     Dates: start: 20051125, end: 20090907
  6. STI571/CGP57148B [Suspect]
     Dosage: NO TREATMENT
     Dates: start: 20090908, end: 20090914
  7. NSAID'S [Concomitant]
     Dosage: UNK
  8. POTASSIUM [Concomitant]
  9. EXCEDRIN UNKNOWN [Suspect]
     Dosage: UNK
  10. STI571/CGP57148B [Suspect]
     Dosage: 600 MG, QD

REACTIONS (10)
  - MELAENA [None]
  - GASTRITIS [None]
  - HIATUS HERNIA [None]
  - ABDOMINAL PAIN [None]
  - DUODENAL ULCER [None]
  - FAECES DISCOLOURED [None]
  - BACK PAIN [None]
  - UPPER GASTROINTESTINAL HAEMORRHAGE [None]
  - ABDOMINAL PAIN UPPER [None]
  - FATIGUE [None]
